FAERS Safety Report 9625932 (Version 1)
Quarter: 2013Q4

REPORT INFORMATION
  Report Type: Spontaneous
  Country: US (occurrence: None)
  Receive Date: 20131015
  Receipt Date: 20131015
  Transmission Date: 20140711
  Serious: Yes (Disabling)
  Sender: FDA-Public Use
  Company Number: None

PATIENT
  Age: 57 Year
  Sex: Female
  Weight: 76.2 kg

DRUGS (2)
  1. LEVOFLOXACIN [Suspect]
     Indication: ASTHMA
     Dosage: 10, ONCE DAILY
     Dates: start: 20130614
  2. LEVOFLOXACIN [Suspect]
     Indication: BRONCHITIS
     Dosage: 10, ONCE DAILY
     Dates: start: 20130614

REACTIONS (8)
  - Nightmare [None]
  - Screaming [None]
  - Headache [None]
  - Arthralgia [None]
  - Myalgia [None]
  - Tendon disorder [None]
  - Arthropathy [None]
  - Depression [None]
